FAERS Safety Report 11287531 (Version 1)
Quarter: 2015Q3

REPORT INFORMATION
  Report Type: Spontaneous
  Country: ZA (occurrence: ZA)
  Receive Date: 20150721
  Receipt Date: 20150721
  Transmission Date: 20151125
  Serious: Yes (Other)
  Sender: FDA-Public Use
  Company Number: ZA-AMEDRA PHARMACEUTICALS LLC-2015AMD00142

PATIENT
  Age: 58 Year
  Sex: Male

DRUGS (2)
  1. EPINEPHRINE (UNKNOWN MANUFACTURER) [Suspect]
     Active Substance: EPINEPHRINE
     Indication: ANAPHYLACTIC REACTION
     Dosage: 0.5 MG, ONCE
     Route: 042
  2. ANTIVENOM [Concomitant]
     Active Substance: UNSPECIFIED INGREDIENT

REACTIONS (7)
  - Electrocardiogram ST segment elevation [Recovered/Resolved]
  - Stress cardiomyopathy [Recovered/Resolved]
  - Autonomic nervous system imbalance [None]
  - Electrocardiogram QT prolonged [Recovered/Resolved]
  - Systolic dysfunction [Recovered/Resolved]
  - Electrocardiogram T wave inversion [Recovered/Resolved]
  - Ventricular hypokinesia [Recovered/Resolved]
